FAERS Safety Report 5245370-X (Version None)
Quarter: 2007Q1

REPORT INFORMATION
  Report Type: 
  Country: None (occurrence: None)
  Receive Date: 20070223
  Receipt Date: 20070214
  Transmission Date: 20070707
  Serious: Yes (Death, Other)
  Sender: FDA-Public Use
  Company Number: HQWYE686418AUG06

PATIENT
  Age: 66 Year
  Sex: Male

DRUGS (15)
  1. MYLOTARG [Suspect]
     Indication: ACUTE MYELOID LEUKAEMIA
     Route: 041
     Dates: start: 20060513, end: 20060513
  2. ISCOTIN [Concomitant]
     Route: 048
     Dates: end: 20060518
  3. ISCOTIN [Concomitant]
     Route: 042
     Dates: start: 20060516, end: 20060531
  4. STREPTOMYCIN SULFATE [Concomitant]
     Route: 041
     Dates: start: 20060513, end: 20060531
  5. FUNGUARD [Concomitant]
     Route: 041
     Dates: start: 20060510, end: 20060522
  6. PREDNISOLONE ACETATE [Concomitant]
     Route: 041
     Dates: start: 20060516, end: 20060531
  7. FOY [Concomitant]
     Route: 041
     Dates: start: 20060511, end: 20060519
  8. FOY [Concomitant]
     Route: 041
     Dates: start: 20060520, end: 20060524
  9. GRAN [Concomitant]
     Route: 041
     Dates: start: 20060519, end: 20060531
  10. PREDONINE [Concomitant]
     Route: 048
     Dates: start: 20060513, end: 20060515
  11. HABEKACIN [Concomitant]
     Route: 041
     Dates: start: 20060513, end: 20060517
  12. OMEPRAL [Concomitant]
     Route: 042
     Dates: start: 20060516, end: 20060531
  13. DIFLUCAN [Concomitant]
     Indication: PROPHYLAXIS
     Route: 048
     Dates: start: 20060513, end: 20060518
  14. MEROPEN [Concomitant]
     Route: 041
     Dates: start: 20060510, end: 20060519
  15. MEROPEN [Concomitant]
     Route: 041
     Dates: start: 20060520, end: 20060522

REACTIONS (3)
  - HAEMOLYTIC ANAEMIA [None]
  - HAEMORRHAGIC DIATHESIS [None]
  - NEUTROPHIL COUNT DECREASED [None]
